FAERS Safety Report 4420656-7 (Version None)
Quarter: 2004Q3

REPORT INFORMATION
  Report Type: 
  Country: None (occurrence: None)
  Receive Date: 20040809
  Receipt Date: 20040419
  Transmission Date: 20050211
  Serious: No
  Sender: FDA-Public Use
  Company Number: US-GLAXOSMITHKLINE-A0507565A

PATIENT
  Age: 59 Year
  Sex: Female

DRUGS (4)
  1. PAXIL [Suspect]
     Indication: DEPRESSION
     Dosage: 20MG VARIABLE DOSE
     Route: 048
     Dates: start: 20040201
  2. AMBIEN [Concomitant]
  3. ESTROGEN [Concomitant]
  4. ANTI HYPERTENSIVE [Concomitant]

REACTIONS (2)
  - DRUG INEFFECTIVE [None]
  - FATIGUE [None]
